FAERS Safety Report 17909071 (Version 1)
Quarter: 2020Q2

REPORT INFORMATION
  Report Type: Spontaneous
  Country: GB (occurrence: GB)
  Receive Date: 20200617
  Receipt Date: 20200617
  Transmission Date: 20200714
  Serious: Yes (Other)
  Sender: FDA-Public Use
  Company Number: GB-MYLANLABS-2020M1057024

PATIENT
  Age: 15 Year
  Sex: Female

DRUGS (17)
  1. MORPHINE [Suspect]
     Active Substance: MORPHINE
     Indication: PELVIC PAIN
     Dosage: MODIFIED RELEASE
     Route: 065
  2. LIGNOCAINE                         /00033401/ [Concomitant]
     Active Substance: LIDOCAINE HYDROCHLORIDE
     Indication: TRIGEMINAL NEURALGIA
     Route: 065
  3. LIVIAL [Suspect]
     Active Substance: TIBOLONE
     Indication: PELVIC PAIN
     Route: 065
  4. LIVIAL [Suspect]
     Active Substance: TIBOLONE
     Indication: ENDOMETRIOSIS
  5. DEPO-PROVERA [Concomitant]
     Active Substance: MEDROXYPROGESTERONE ACETATE
     Indication: PELVIC PAIN
  6. TRAMADOL. [Concomitant]
     Active Substance: TRAMADOL
     Indication: TRIGEMINAL NEURALGIA
     Route: 065
  7. LUPRON DEPOT [Suspect]
     Active Substance: LEUPROLIDE ACETATE
     Indication: PELVIC PAIN
     Dosage: UNK
     Route: 065
  8. CODEINE [Suspect]
     Active Substance: CODEINE
     Indication: ENDOMETRIOSIS
  9. CERAZETTE                          /00011001/ [Suspect]
     Active Substance: CEPHALORIDINE
     Indication: PELVIC PAIN
     Route: 065
  10. DEPO-PROVERA [Concomitant]
     Active Substance: MEDROXYPROGESTERONE ACETATE
     Indication: ENDOMETRIOSIS
     Route: 065
  11. CODEINE [Suspect]
     Active Substance: CODEINE
     Indication: PELVIC PAIN
     Route: 065
  12. IBUPROFEN. [Concomitant]
     Active Substance: IBUPROFEN
     Indication: TRIGEMINAL NEURALGIA
     Route: 065
  13. CERAZETTE                          /00011001/ [Suspect]
     Active Substance: CEPHALORIDINE
     Indication: ENDOMETRIOSIS
  14. LUPRON DEPOT [Suspect]
     Active Substance: LEUPROLIDE ACETATE
     Indication: ENDOMETRIOSIS
     Dosage: RE-INTRODUCED WITH TIBOLONE
     Route: 065
  15. ORAMORPH [Suspect]
     Active Substance: MORPHINE SULFATE
     Indication: PELVIC PAIN
     Route: 065
  16. GABAPENTIN. [Suspect]
     Active Substance: GABAPENTIN
     Indication: PELVIC PAIN
     Route: 065
  17. MICROGYNON                         /00022701/ [Concomitant]
     Active Substance: ETHINYL ESTRADIOL\LEVONORGESTREL ACETATE
     Indication: ORAL CONTRACEPTION
     Dosage: UNK
     Route: 048

REACTIONS (1)
  - Drug ineffective [Unknown]
